APPROVED DRUG PRODUCT: CLOBETASOL PROPIONATE
Active Ingredient: CLOBETASOL PROPIONATE
Strength: 0.05%
Dosage Form/Route: SPRAY;TOPICAL
Application: A090898 | Product #001 | TE Code: AT
Applicant: PADAGIS US LLC
Approved: Jun 16, 2011 | RLD: No | RS: No | Type: RX